FAERS Safety Report 5255126-X (Version None)
Quarter: 2007Q1

REPORT INFORMATION
  Report Type: 
  Country: None (occurrence: None)
  Receive Date: 20070228
  Receipt Date: 20070220
  Transmission Date: 20070707
  Serious: Yes (Hospitalization)
  Sender: FDA-Public Use
  Company Number: 2007SP003268

PATIENT
  Age: 42 Year
  Sex: Male

DRUGS (2)
  1. TEMODAL [Suspect]
     Indication: GLIOBLASTOMA MULTIFORME
     Dosage: PO
     Route: 048
     Dates: start: 20070115, end: 20070206
  2. RADIOTHERAPY (CON.) [Concomitant]

REACTIONS (3)
  - HAEMOGLOBIN DECREASED [None]
  - HYPERGLYCAEMIA [None]
  - PNEUMONIA [None]
